FAERS Safety Report 8479012-7 (Version None)
Quarter: 2012Q2

REPORT INFORMATION
  Report Type: 
  Country: None (occurrence: None)
  Receive Date: 20120629
  Receipt Date: 20120621
  Transmission Date: 20120825
  Serious: Yes (Disabling)
  Sender: FDA-Public Use
  Company Number: GB-MERCK-1206USA04049

PATIENT
  Age: 72 Year
  Sex: Female
  Weight: 84 kg

DRUGS (16)
  1. LANSOPRAZOLE [Concomitant]
     Route: 065
     Dates: start: 20120529
  2. PLAVIX [Concomitant]
     Route: 065
     Dates: start: 20120215, end: 20120316
  3. BISOPROLOL [Concomitant]
     Route: 065
     Dates: start: 20120402, end: 20120430
  4. BISOPROLOL [Concomitant]
     Route: 065
     Dates: start: 20120529
  5. ACETAMINOPHEN AND CODEINE [Concomitant]
     Route: 065
     Dates: start: 20120402, end: 20120430
  6. LEVOTHYROXINE SODIUM [Concomitant]
     Route: 065
     Dates: start: 20120402, end: 20120517
  7. LEVOTHYROXINE SODIUM [Concomitant]
     Route: 065
     Dates: start: 20120529
  8. VALSARTAN [Concomitant]
     Route: 065
     Dates: start: 20120402, end: 20120430
  9. BEZAFIBRATE [Concomitant]
     Route: 065
     Dates: start: 20120529
  10. PLAVIX [Concomitant]
     Route: 065
     Dates: start: 20120402, end: 20120502
  11. ZOCOR [Suspect]
     Route: 048
  12. ASPIRIN [Concomitant]
     Route: 065
     Dates: start: 20120402, end: 20120430
  13. ASPIRIN [Concomitant]
     Route: 065
     Dates: start: 20120529
  14. ACETAMINOPHEN AND CODEINE [Concomitant]
     Route: 065
     Dates: start: 20120529
  15. PLAVIX [Concomitant]
     Route: 065
     Dates: start: 20120529
  16. VALSARTAN [Concomitant]
     Route: 065
     Dates: start: 20120529

REACTIONS (3)
  - OEDEMA PERIPHERAL [None]
  - PAIN IN EXTREMITY [None]
  - MASS [None]
